FAERS Safety Report 6492500-8 (Version None)
Quarter: 2009Q4

REPORT INFORMATION
  Report Type: 
  Country: None (occurrence: None)
  Receive Date: 20091214
  Receipt Date: 20091204
  Transmission Date: 20100525
  Serious: Yes (Other)
  Sender: FDA-Public Use
  Company Number: CA-ROCHE-672754

PATIENT
  Age: 56 Year
  Sex: Male
  Weight: 81.6 kg

DRUGS (2)
  1. TAMIFLU [Suspect]
     Indication: H1N1 INFLUENZA
     Route: 048
     Dates: start: 20090506, end: 20090507
  2. ASPIRIN [Concomitant]
     Indication: PAIN
     Dosage: TAKEN AS REQUIRED FOR SEVERAL WEEKS
     Route: 048

REACTIONS (1)
  - BENIGN PROSTATIC HYPERPLASIA [None]
